FAERS Safety Report 13034434 (Version 1)
Quarter: 2016Q4

REPORT INFORMATION
  Report Type: Spontaneous
  Country: US (occurrence: US)
  Receive Date: 20161216
  Receipt Date: 20161216
  Transmission Date: 20170207
  Serious: No
  Sender: FDA-Public Use
  Company Number: US-JNJFOC-20161129688

PATIENT
  Age: 94 Year
  Sex: Female
  Weight: 71.67 kg

DRUGS (6)
  1. MULTI VITAMIN [Concomitant]
     Active Substance: VITAMINS
     Indication: NUTRITIONAL SUPPLEMENTATION
     Route: 065
  2. AREDS [Concomitant]
     Active Substance: MINERALS\VITAMINS
     Indication: EYE DISORDER
     Route: 065
  3. WOMENS ROGAINE UNSCENTED [Suspect]
     Active Substance: MINOXIDIL
     Route: 061
  4. WOMENS ROGAINE UNSCENTED [Suspect]
     Active Substance: MINOXIDIL
     Indication: ALOPECIA
     Dosage: 1/2 CAP
     Route: 061
     Dates: start: 2016, end: 20161121
  5. LEVOXYL [Concomitant]
     Active Substance: LEVOTHYROXINE SODIUM
     Indication: THYROID DISORDER
     Route: 065
  6. CALCIUM [Concomitant]
     Active Substance: CALCIUM
     Indication: NUTRITIONAL SUPPLEMENTATION
     Route: 065

REACTIONS (1)
  - Hair growth abnormal [Not Recovered/Not Resolved]

NARRATIVE: CASE EVENT DATE: 2016
